FAERS Safety Report 17842588 (Version 2)
Quarter: 2020Q2

REPORT INFORMATION
  Report Type: Spontaneous
  Country: HU (occurrence: HU)
  Receive Date: 20200529
  Receipt Date: 20200615
  Transmission Date: 20200714
  Serious: Yes (Other)
  Sender: FDA-Public Use
  Company Number: NVSC2020HU148438

PATIENT
  Age: 35 Year
  Sex: Female
  Weight: 53 kg

DRUGS (13)
  1. EUTHYROX [Suspect]
     Active Substance: LEVOTHYROXINE SODIUM
     Dosage: 50 MICROGRAM, IN THE MORNING (50 UG, DAILY (1 TABLET) CONTINOUS SINCE SPRING OF 2010)
     Route: 065
     Dates: start: 201003
  2. FRAXIPARINE [Suspect]
     Active Substance: NADROPARIN CALCIUM
     Indication: FACTOR V LEIDEN MUTATION
     Dosage: UNK
     Route: 050
     Dates: start: 20090217
  3. FRAXIPARINE [Suspect]
     Active Substance: NADROPARIN CALCIUM
     Dosage: 0.4 ML, 1X/DAY
     Route: 058
     Dates: start: 20190712
  4. CIPRALEX [Suspect]
     Active Substance: ESCITALOPRAM OXALATE
     Dosage: 10 MG, DAILY (1 TBL) (DRUG TAKEN BY THE FATHER
     Route: 065
     Dates: start: 20120312
  5. CIPRALEX [Suspect]
     Active Substance: ESCITALOPRAM OXALATE
     Dosage: UNK
     Route: 065
  6. EUTHYROX [Suspect]
     Active Substance: LEVOTHYROXINE SODIUM
     Indication: HYPOTHYROIDISM
     Dosage: 50 UG, DAILY (1 TABLET) CONTINOUS SINCE SPRING OF 2010
     Route: 065
     Dates: start: 2010
  7. FRAXIPARINE [Suspect]
     Active Substance: NADROPARIN CALCIUM
     Dosage: UNK
     Route: 065
     Dates: start: 20150818
  8. FRAXIPARINE [Suspect]
     Active Substance: NADROPARIN CALCIUM
     Dosage: UNK
     Route: 065
     Dates: start: 20100811
  9. CIPRALEX [Suspect]
     Active Substance: ESCITALOPRAM OXALATE
     Indication: OBSESSIVE-COMPULSIVE DISORDER
     Dosage: 20 MG, DAILY (1 TBL) (DRUG TAKEN BY THE FATHER
     Route: 065
  10. FRAXIPARINE [Suspect]
     Active Substance: NADROPARIN CALCIUM
     Dosage: 0.3 MILLILITER, ONCE
     Route: 058
     Dates: start: 201907
  11. LIPIDIL [Suspect]
     Active Substance: FENOFIBRATE
     Dosage: EXPOSURE VIA PARTNER: 267 MILLIGRAM, QPM (267 MG)
     Route: 050
     Dates: start: 20181213
  12. XALATAN [Suspect]
     Active Substance: LATANOPROST
     Indication: GLAUCOMA
     Dosage: EXPOSURE VIA PARTNER: 1 DOSAGE FORM, QPM (1-1 DROP, DAILY
     Route: 050
     Dates: start: 20180424
  13. MONTELUKAST [Suspect]
     Active Substance: MONTELUKAST SODIUM
     Indication: PRODUCT USED FOR UNKNOWN INDICATION
     Dosage: EXPOSURE VIA PARTNER: 10 MILLIGRAM, IN THE MORNING
     Route: 050
     Dates: start: 20190401

REACTIONS (4)
  - Abortion spontaneous [Unknown]
  - Exposure via body fluid [Recovered/Resolved]
  - Paternal exposure during pregnancy [Unknown]
  - Maternal exposure during pregnancy [Unknown]

NARRATIVE: CASE EVENT DATE: 2019
